FAERS Safety Report 20702222 (Version 1)
Quarter: 2022Q2

REPORT INFORMATION
  Report Type: Spontaneous
  Country: US (occurrence: None)
  Receive Date: 20220411
  Receipt Date: 20220411
  Transmission Date: 20220721
  Serious: Yes (Other)
  Sender: FDA-Public Use
  Company Number: None

PATIENT
  Age: 73 Year
  Sex: Female

DRUGS (1)
  1. PROLIA [Suspect]
     Active Substance: DENOSUMAB
     Indication: Osteoporosis
     Dates: start: 20171116, end: 20220121

REACTIONS (3)
  - Myalgia [None]
  - Non-cardiac chest pain [None]
  - Back pain [None]

NARRATIVE: CASE EVENT DATE: 20220123
